FAERS Safety Report 16399695 (Version 5)
Quarter: 2019Q3

REPORT INFORMATION
  Report Type: Spontaneous
  Country: US (occurrence: US)
  Receive Date: 20190606
  Receipt Date: 20190806
  Transmission Date: 20191004
  Serious: No
  Sender: FDA-Public Use
  Company Number: US-SA-2019SA150798

PATIENT
  Age: 58 Year
  Sex: Male
  Weight: 156 kg

DRUGS (2)
  1. LANTUS [Suspect]
     Active Substance: INSULIN GLARGINE
     Indication: TYPE 2 DIABETES MELLITUS
     Dosage: 75-80 U
     Route: 065
  2. METFORMIN HYDROCHLORIDE. [Suspect]
     Active Substance: METFORMIN HYDROCHLORIDE
     Indication: TYPE 2 DIABETES MELLITUS
     Route: 065

REACTIONS (5)
  - Drug ineffective [Unknown]
  - General physical health deterioration [Recovered/Resolved]
  - Off label use [Unknown]
  - Blood glucose increased [Recovered/Resolved]
  - Incorrect dose administered [Unknown]
